FAERS Safety Report 5525440-9 (Version None)
Quarter: 2007Q4

REPORT INFORMATION
  Report Type: 
  Country: None (occurrence: None)
  Receive Date: 20071119
  Receipt Date: 20071107
  Transmission Date: 20080405
  Serious: Yes (Life-Threatening, Hospitalization)
  Sender: FDA-Public Use
  Company Number: GXKR2007GB09600

PATIENT
  Age: 75 Year
  Sex: Male
  Weight: 66 kg

DRUGS (16)
  1. CLARITHROMYCIN [Suspect]
     Indication: INFECTION
     Dosage: 500 MG, BID, ORAL
     Route: 048
     Dates: start: 20070913, end: 20070914
  2. LAMOTRIGINE [Suspect]
     Indication: PARTIAL SEIZURES
     Dosage: 50 MG, BID, ORAL
     Route: 048
     Dates: start: 20050601
  3. EPINEPHRINE [Concomitant]
  4. ACETYLSALICYLIC ACID SRT [Concomitant]
  5. BECLAZONE (BECLOMETASONE DIPROPIONATE) [Concomitant]
  6. ENOXAPARIN SODIUM [Concomitant]
  7. CO-AMILOFRUSE (AMILORIDE HYDROCHLORIDE, FUROSEMIDE) [Concomitant]
  8. DOPAMINE HCL [Concomitant]
  9. FUROSEMIDE [Concomitant]
  10. INSULIN [Concomitant]
  11. NICORANDIL (NICORANDIL) [Concomitant]
  12. NOREPINEPHRINE BITARTRATE [Concomitant]
  13. ACETAMINOPHEN [Concomitant]
  14. SIMVASTATIN [Concomitant]
  15. THEOPHYLLINE [Concomitant]
  16. WARFARIN SODIUM [Concomitant]

REACTIONS (4)
  - CONVULSION [None]
  - DRUG INTERACTION [None]
  - INFECTION [None]
  - OBSTRUCTIVE AIRWAYS DISORDER [None]
